FAERS Safety Report 23194677 (Version 4)
Quarter: 2024Q1

REPORT INFORMATION
  Report Type: Spontaneous
  Country: US (occurrence: US)
  Receive Date: 20231117
  Receipt Date: 20240122
  Transmission Date: 20240410
  Serious: Yes (Life-Threatening, Hospitalization, Other)
  Sender: FDA-Public Use
  Company Number: US-AUROBINDO-AUR-APL-2023-069184

PATIENT
  Age: 15 Year
  Sex: Female
  Weight: 96 kg

DRUGS (8)
  1. METHOTREXATE [Interacting]
     Active Substance: METHOTREXATE
     Indication: Acute lymphocytic leukaemia
     Dosage: UNK, CYCLICAL
     Route: 065
  2. METHOTREXATE [Interacting]
     Active Substance: METHOTREXATE
     Indication: Central nervous system leukaemia
     Dosage: 150 MG/M2, CYCLICAL
     Route: 042
  3. METHOTREXATE [Interacting]
     Active Substance: METHOTREXATE
     Dosage: 100 MG/M2, CYCLICAL
     Route: 042
  4. METHOTREXATE [Interacting]
     Active Substance: METHOTREXATE
     Dosage: 250 MG/M2, CYCLICAL
     Route: 042
  5. METHOTREXATE [Interacting]
     Active Substance: METHOTREXATE
     Dosage: 300 MG/M2, CYCLICAL
     Route: 042
  6. METHOTREXATE [Interacting]
     Active Substance: METHOTREXATE
     Dosage: 200 MG/M2, CYCLICAL
     Route: 042
  7. ESOMEPRAZOLE [Interacting]
     Active Substance: ESOMEPRAZOLE
     Indication: Gastrooesophageal reflux disease
     Dosage: UNK
     Route: 065
  8. PEGASPARGASE [Suspect]
     Active Substance: PEGASPARGASE
     Indication: Central nervous system leukaemia
     Dosage: UNK
     Route: 065

REACTIONS (10)
  - Acute hepatic failure [Recovering/Resolving]
  - Acute kidney injury [Recovering/Resolving]
  - Chemotherapeutic drug level increased [Recovered/Resolved]
  - Drug interaction [Recovering/Resolving]
  - Disease progression [Recovering/Resolving]
  - Hepatic steatosis [Recovering/Resolving]
  - Multiple organ dysfunction syndrome [Recovering/Resolving]
  - Pancreatitis [Recovering/Resolving]
  - Drug clearance decreased [Unknown]
  - Toxicity to various agents [Unknown]
